FAERS Safety Report 5022118-5 (Version None)
Quarter: 2006Q2

REPORT INFORMATION
  Report Type: 
  Country: None (occurrence: None)
  Receive Date: 20060609
  Receipt Date: 20060602
  Transmission Date: 20061013
  Serious: Yes (Hospitalization)
  Sender: FDA-Public Use
  Company Number: ES-AVENTIS-200615920GDDC

PATIENT
  Age: 74 Year
  Sex: Male

DRUGS (10)
  1. DESMOPRESSIN ACETATE [Suspect]
     Route: 048
     Dates: start: 20060419, end: 20060504
  2. FINASTERIDE [Concomitant]
     Route: 048
  3. CLOPIDOGREL [Concomitant]
     Route: 048
  4. DIEMIL [Concomitant]
     Route: 048
  5. TIOTROPIUM BROMIDE [Concomitant]
     Route: 055
  6. FORMOTEROL FUMARATE [Concomitant]
     Route: 055
  7. OMEPRAZOLE [Concomitant]
     Route: 048
  8. TERBUTALINE [Concomitant]
  9. CLORAZEPATE DIPOTASSIUM [Concomitant]
     Route: 048
  10. ALMAGATE [Concomitant]
     Route: 048

REACTIONS (4)
  - HEADACHE [None]
  - HYPONATRAEMIA [None]
  - MOTION SICKNESS [None]
  - MUSCULAR WEAKNESS [None]
